FAERS Safety Report 23413508 (Version 1)
Quarter: 2024Q1

REPORT INFORMATION
  Report Type: Spontaneous
  Country: US (occurrence: US)
  Receive Date: 20240117
  Receipt Date: 20240117
  Transmission Date: 20240410
  Serious: No
  Sender: FDA-Public Use
  Company Number: US-NOVOPROD-1143927

PATIENT
  Sex: Female

DRUGS (1)
  1. OZEMPIC [Suspect]
     Active Substance: SEMAGLUTIDE
     Indication: Diabetes mellitus
     Dosage: 1MG
     Route: 058

REACTIONS (2)
  - Gastrointestinal disorder [Recovered/Resolved with Sequelae]
  - Nausea [Recovering/Resolving]

NARRATIVE: CASE EVENT DATE: 20231117
